FAERS Safety Report 5118860-8 (Version None)
Quarter: 2006Q3

REPORT INFORMATION
  Report Type: 
  Country: None (occurrence: None)
  Receive Date: 20060927
  Receipt Date: 20060911
  Transmission Date: 20061208
  Serious: Yes (Hospitalization)
  Sender: FDA-Public Use
  Company Number: SP00943

PATIENT
  Age: 67 Year
  Sex: Female
  Weight: 90.7194 kg

DRUGS (5)
  1. OSMOPREP [Suspect]
     Indication: COLONOSCOPY
     Dosage: 32 TABLETS (20 TABLETS IN THE EVENING, 12 THE FOLLOWING MORNING), ORAL
     Route: 048
     Dates: start: 20060626, end: 20060627
  2. PRINIVIL [Concomitant]
  3. POTASSIUM SUPPLEMENT [Concomitant]
  4. LASIX [Concomitant]
  5. SYNTHROID [Concomitant]

REACTIONS (6)
  - BLOOD CREATINE INCREASED [None]
  - BLOOD POTASSIUM INCREASED [None]
  - BLOOD UREA INCREASED [None]
  - LYMPHOMA [None]
  - RENAL FAILURE ACUTE [None]
  - SPEECH DISORDER [None]
